FAERS Safety Report 23753856 (Version 1)
Quarter: 2024Q2

REPORT INFORMATION
  Report Type: Other
  Country: CA (occurrence: CA)
  Receive Date: 20240417
  Receipt Date: 20240417
  Transmission Date: 20240715
  Serious: Yes (Death, Other)
  Sender: FDA-Public Use
  Company Number: CA-PFIZER INC-202400087948

PATIENT
  Age: 52 Year
  Sex: Male

DRUGS (9)
  1. TRASTUZUMAB [Suspect]
     Active Substance: TRASTUZUMAB
     Indication: Pancreatic carcinoma metastatic
     Route: 065
  2. BEVACIZUMAB [Suspect]
     Active Substance: BEVACIZUMAB
     Indication: Pancreatic carcinoma metastatic
     Route: 065
  3. CAPECITABINE [Concomitant]
     Active Substance: CAPECITABINE
     Route: 065
  4. GEMCITABINE [Concomitant]
     Active Substance: GEMCITABINE
     Route: 065
  5. LORBRENA [Concomitant]
     Active Substance: LORLATINIB
     Route: 065
  6. OXALIPLATIN [Concomitant]
     Active Substance: OXALIPLATIN
     Route: 065
  7. PEMBROLIZUMAB [Concomitant]
     Active Substance: PEMBROLIZUMAB
     Route: 065
  8. PEMETREXED [Concomitant]
     Active Substance: PEMETREXED
     Route: 065
  9. PERTUZUMAB [Concomitant]
     Active Substance: PERTUZUMAB
     Route: 065

REACTIONS (7)
  - Drug ineffective for unapproved indication [Fatal]
  - Drug-induced liver injury [Fatal]
  - Gene mutation [Fatal]
  - Pancytopenia [Fatal]
  - Pleural effusion [Fatal]
  - Off label use [Fatal]
  - Pancreatic carcinoma metastatic [Fatal]
